FAERS Safety Report 25411202 (Version 1)
Quarter: 2025Q2

REPORT INFORMATION
  Report Type: Report from Study
  Country: NL (occurrence: NL)
  Receive Date: 20250609
  Receipt Date: 20250609
  Transmission Date: 20250717
  Serious: Yes (Death, Other)
  Sender: MERZ
  Company Number: NL-MERZ PHARMACEUTICALS, LLC-ACO_177868_2025

PATIENT
  Age: 63 Year
  Sex: Female

DRUGS (1)
  1. DALFAMPRIDINE [Suspect]
     Active Substance: DALFAMPRIDINE
     Indication: Product used for unknown indication
     Dosage: 10 MILLIGRAM, BID
     Route: 065
     Dates: start: 20200327, end: 20250401

REACTIONS (2)
  - Influenza like illness [Fatal]
  - Dyspnoea [Fatal]
